FAERS Safety Report 8064864 (Version 3)
Quarter: 2013Q1

REPORT INFORMATION
  Report Type: Spontaneous
  Country: US (occurrence: US)
  Receive Date: 20110802
  Receipt Date: 20130131
  Transmission Date: 20140127
  Serious: Yes (Hospitalization)
  Sender: FDA-Public Use
  Company Number: US-GLAXOSMITHKLINE-A0747354A

PATIENT
  Age: 53 Year
  Sex: Female
  Weight: 145.9 kg

DRUGS (13)
  1. AVANDIA [Suspect]
     Indication: TYPE 2 DIABETES MELLITUS
     Dosage: 4MG PER DAY
     Route: 048
     Dates: start: 2002, end: 2007
  2. SINGULAIR [Concomitant]
  3. LIPITOR [Concomitant]
     Dates: start: 2004, end: 2007
  4. CRESTOR [Concomitant]
     Dates: start: 2006, end: 2007
  5. ATENOLOL [Concomitant]
     Dates: start: 1988
  6. BYETTA [Concomitant]
     Dates: start: 2005, end: 2006
  7. GLUCOTROL [Concomitant]
     Dates: start: 1996, end: 2003
  8. GLARGINE [Concomitant]
     Dates: start: 2003
  9. METFORMIN [Concomitant]
     Dates: start: 1996, end: 2003
  10. GLUCOPHAGE [Concomitant]
     Dates: start: 1996, end: 2003
  11. ADVAIR [Concomitant]
     Indication: ASTHMA
  12. ALBUTEROL [Concomitant]
  13. PRILOSEC [Concomitant]

REACTIONS (2)
  - Myocardial infarction [Unknown]
  - Cardiac failure congestive [Unknown]
